FAERS Safety Report 9940755 (Version 1)
Quarter: 2014Q1

REPORT INFORMATION
  Report Type: Spontaneous
  Country: US (occurrence: US)
  Receive Date: 20140303
  Receipt Date: 20140303
  Transmission Date: 20141002
  Serious: No
  Sender: FDA-Public Use
  Company Number: US-PFIZER INC-2014060179

PATIENT
  Age: 43 Year
  Sex: Female
  Weight: 60.32 kg

DRUGS (2)
  1. LYRICA [Suspect]
     Indication: FIBROMYALGIA
     Dosage: 75 MG, 2X/DAY
     Dates: start: 201303, end: 201402
  2. DICLOFENAC [Concomitant]
     Indication: MUSCLE RELAXANT THERAPY
     Dosage: 75 MG, 2X/DAY

REACTIONS (1)
  - Pain [Unknown]
